FAERS Safety Report 5830372-2 (Version None)
Quarter: 2008Q3

REPORT INFORMATION
  Report Type: 
  Country: None (occurrence: None)
  Receive Date: 20080801
  Receipt Date: 20080723
  Transmission Date: 20090109
  Serious: Yes (Hospitalization)
  Sender: FDA-Public Use
  Company Number: FR-ROCHE-577589

PATIENT
  Age: 76 Year
  Sex: Male

DRUGS (8)
  1. ROCEPHIN [Suspect]
     Dosage: FORM: INJECTABLE SOLUTION
     Route: 042
     Dates: start: 20080411, end: 20080413
  2. ECAZIDE [Suspect]
     Indication: DRUG USE FOR UNKNOWN INDICATION
     Route: 048
     Dates: start: 20080325, end: 20080413
  3. CAPTOPRIL [Suspect]
     Indication: DRUG USE FOR UNKNOWN INDICATION
     Route: 048
     Dates: end: 20080411
  4. FENOFIBRATE [Concomitant]
  5. CORDARONE [Concomitant]
  6. SOTALOL HCL [Concomitant]
     Dates: start: 20080405
  7. METFORMIN HCL [Concomitant]
  8. PREVISCAN [Concomitant]
     Dates: start: 20080301

REACTIONS (1)
  - RENAL FAILURE [None]
